FAERS Safety Report 19467708 (Version 1)
Quarter: 2021Q2

REPORT INFORMATION
  Report Type: Spontaneous
  Country: US (occurrence: US)
  Receive Date: 20210628
  Receipt Date: 20210628
  Transmission Date: 20210717
  Serious: Yes (Other)
  Sender: FDA-Public Use
  Company Number: None

PATIENT
  Age: 50 Year
  Sex: Male
  Weight: 70.31 kg

DRUGS (9)
  1. BENZTROPINE. [Concomitant]
     Active Substance: BENZTROPINE
  2. TYLENOL [Concomitant]
     Active Substance: ACETAMINOPHEN
  3. VITAMIN D3 [Concomitant]
     Active Substance: CHOLECALCIFEROL
  4. PERPHENAZINE. [Concomitant]
     Active Substance: PERPHENAZINE
  5. LEVETIRACETAM. [Concomitant]
     Active Substance: LEVETIRACETAM
  6. PERPHENAZINE 4MG [Suspect]
     Active Substance: PERPHENAZINE
     Indication: ANXIETY
     Dosage: ?          QUANTITY:2 DF DOSAGE FORM;OTHER FREQUENCY:1 AM ? 1 PM;?
     Route: 048
     Dates: start: 202003
  7. LAMOTRIGINE. [Concomitant]
     Active Substance: LAMOTRIGINE
  8. ZONISAMIDE. [Concomitant]
     Active Substance: ZONISAMIDE
  9. CARBAMAZIPINE [Concomitant]
     Active Substance: CARBAMAZEPINE

REACTIONS (2)
  - Arterial insufficiency [None]
  - Erectile dysfunction [None]
